FAERS Safety Report 18000743 (Version 1)
Quarter: 2020Q3

REPORT INFORMATION
  Report Type: Spontaneous
  Country: PT (occurrence: PT)
  Receive Date: 20200709
  Receipt Date: 20200709
  Transmission Date: 20201103
  Serious: Yes (Other)
  Sender: FDA-Public Use
  Company Number: PT-PFIZER INC-2020260472

PATIENT
  Sex: Male

DRUGS (2)
  1. SALAZOPIRINA EN [Suspect]
     Active Substance: SULFASALAZINE
     Dosage: 3 G, 1X/DAY (2 + 2 + 2 TABLET PER DAY)
     Route: 048
     Dates: start: 2018, end: 2020
  2. SALAZOPIRINA EN [Suspect]
     Active Substance: SULFASALAZINE
     Dosage: 3 G, 1X/DAY (2 + 2 + 2 TABLET PER DAY)
     Route: 048
     Dates: start: 2020, end: 202007

REACTIONS (1)
  - Eye pain [Recovered/Resolved]

NARRATIVE: CASE EVENT DATE: 202003
